FAERS Safety Report 16363230 (Version 2)
Quarter: 2019Q2

REPORT INFORMATION
  Report Type: Spontaneous
  Country: LV (occurrence: LV)
  Receive Date: 20190528
  Receipt Date: 20190614
  Transmission Date: 20190711
  Serious: Yes (Death, Other)
  Sender: FDA-Public Use
  Company Number: LV-GILEAD-2019-0409989

PATIENT
  Age: 54 Year
  Sex: Male

DRUGS (5)
  1. VOSEVI [Suspect]
     Active Substance: SOFOSBUVIR\VELPATASVIR\VOXILAPREVIR
     Indication: HEPATITIS C
     Dosage: UNK
     Route: 065
     Dates: start: 20181023
  2. SITAGLIPTIN [Concomitant]
     Active Substance: SITAGLIPTIN
  3. DACLATASVIR. [Concomitant]
     Active Substance: DACLATASVIR
  4. SORAFENIB [Concomitant]
     Active Substance: SORAFENIB
  5. SOFOSBUVIR [Concomitant]
     Active Substance: SOFOSBUVIR

REACTIONS (3)
  - Hepatocellular carcinoma [Fatal]
  - Intestinal perforation [Fatal]
  - Gastrointestinal carcinoma [Fatal]

NARRATIVE: CASE EVENT DATE: 20190319
